FAERS Safety Report 10686468 (Version 2)
Quarter: 2015Q4

REPORT INFORMATION
  Report Type: Spontaneous
  Country: US (occurrence: US)
  Receive Date: 20150101
  Receipt Date: 20151207
  Transmission Date: 20160304
  Serious: Yes (Death)
  Sender: FDA-Public Use
  Company Number: US-ROCHE-1516418

PATIENT
  Age: 63 Year
  Sex: Male

DRUGS (4)
  1. NORCO [Concomitant]
     Active Substance: ACETAMINOPHEN\HYDROCODONE BITARTRATE
     Indication: PAIN
     Route: 048
     Dates: start: 20140314
  2. ONDANSETRON [Concomitant]
     Active Substance: ONDANSETRON
     Route: 048
     Dates: start: 20141210
  3. XELODA [Suspect]
     Active Substance: CAPECITABINE
     Indication: RECTOSIGMOID CANCER
     Route: 048
     Dates: start: 20140106, end: 20140408
  4. PRILOSEC [Concomitant]
     Active Substance: OMEPRAZOLE MAGNESIUM
     Indication: GASTROOESOPHAGEAL REFLUX DISEASE
     Route: 048
     Dates: start: 20141121

REACTIONS (1)
  - Death [Fatal]

NARRATIVE: CASE EVENT DATE: 20141228
